FAERS Safety Report 7278437-5 (Version None)
Quarter: 2011Q1

REPORT INFORMATION
  Report Type: 
  Country: None (occurrence: None)
  Receive Date: 20110207
  Receipt Date: 20110127
  Transmission Date: 20110831
  Serious: Yes (Hospitalization)
  Sender: FDA-Public Use
  Company Number: BE-JNJFOC-20110107294

PATIENT

DRUGS (2)
  1. INVEGA [Suspect]
     Indication: ILL-DEFINED DISORDER
  2. ABILIFY [Concomitant]

REACTIONS (1)
  - BIPOLAR I DISORDER [None]
